FAERS Safety Report 18368722 (Version 2)
Quarter: 2021Q2

REPORT INFORMATION
  Report Type: Report from Study
  Country: US (occurrence: US)
  Receive Date: 20201010
  Receipt Date: 20210601
  Transmission Date: 20210717
  Serious: No
  Sender: FDA-Public Use
  Company Number: US-SHIRE-US202032912

PATIENT
  Sex: Female
  Weight: 54.42 kg

DRUGS (9)
  1. ACETAMINOPHEN. [Concomitant]
     Active Substance: ACETAMINOPHEN
     Route: 065
  2. VITAMIN D2 [Concomitant]
     Active Substance: ERGOCALCIFEROL
     Route: 065
  3. CUVITRU [Suspect]
     Active Substance: HUMAN IMMUNOGLOBULIN G
     Dosage: 10 GRAM
     Route: 058
     Dates: start: 20210522
  4. EPINEPHRINE. [Concomitant]
     Active Substance: EPINEPHRINE
     Route: 065
  5. CUVITRU [Suspect]
     Active Substance: HUMAN IMMUNOGLOBULIN G
     Indication: BLOOD IMMUNOGLOBULIN G
     Dosage: UNK UNK, 1/WEEK
     Route: 058
  6. DIPHENHYDRAMINE. [Concomitant]
     Active Substance: DIPHENHYDRAMINE
     Route: 065
  7. VITAMIN C + ZINK [Concomitant]
     Route: 065
  8. LMX4 [Concomitant]
     Active Substance: LIDOCAINE
     Route: 065
  9. ALLER TEC [Concomitant]
     Active Substance: CETIRIZINE HYDROCHLORIDE
     Route: 065

REACTIONS (3)
  - Somnolence [Unknown]
  - Infusion site pain [Unknown]
  - Unevaluable event [Recovering/Resolving]
